FAERS Safety Report 16355546 (Version 2)
Quarter: 2020Q3

REPORT INFORMATION
  Report Type: Report from Study
  Country: MX (occurrence: MX)
  Receive Date: 20190525
  Receipt Date: 20200728
  Transmission Date: 20201102
  Serious: Yes (Other)
  Sender: FDA-Public Use
  Company Number: PHHY2018MX178375

PATIENT
  Sex: Female

DRUGS (4)
  1. GALVUS [Suspect]
     Active Substance: VILDAGLIPTIN
     Indication: DIABETES MELLITUS
     Dosage: 1 DF, QD (1 YEAR AGO APPROXIMATELY)
     Route: 048
  2. GALVUS MET [Suspect]
     Active Substance: METFORMIN HYDROCHLORIDE\VILDAGLIPTIN
     Indication: DIABETES MELLITUS
     Dosage: UNK UNK, QD (METFORMIN 850 MG, VILDAGLIPTIN 50 MG)
     Route: 048
  3. GALVUS [Suspect]
     Active Substance: VILDAGLIPTIN
     Dosage: 50 MG
     Route: 065
  4. LANTUS [Concomitant]
     Active Substance: INSULIN GLARGINE
     Indication: DIABETES MELLITUS
     Dosage: 5 U, QHS (AT NIGHT) (1 YEAR AGO APPROXIMATELY)
     Route: 065

REACTIONS (11)
  - Abdominal pain upper [Not Recovered/Not Resolved]
  - Tendonitis [Not Recovered/Not Resolved]
  - Muscle rigidity [Not Recovered/Not Resolved]
  - Grip strength decreased [Not Recovered/Not Resolved]
  - Procedural complication [Unknown]
  - Peripheral swelling [Not Recovered/Not Resolved]
  - Stomatitis [Unknown]
  - Colitis [Unknown]
  - Speech disorder [Unknown]
  - Gastritis [Not Recovered/Not Resolved]
  - Mobility decreased [Not Recovered/Not Resolved]
